FAERS Safety Report 9422826 (Version 1)
Quarter: 2013Q3

REPORT INFORMATION
  Report Type: Spontaneous
  Country: IN (occurrence: IN)
  Receive Date: 20130726
  Receipt Date: 20130726
  Transmission Date: 20140515
  Serious: Yes (Other)
  Sender: FDA-Public Use
  Company Number: IN-PFIZER INC-2013217333

PATIENT
  Age: 40 Year
  Sex: 0

DRUGS (2)
  1. ATROPINE [Suspect]
     Indication: ANAESTHESIA
     Dosage: UNK
  2. ADRENALINE [Suspect]
     Dosage: UNK

REACTIONS (6)
  - Product label confusion [Unknown]
  - Tachycardia [Unknown]
  - Hypertension [Unknown]
  - Ventricular tachycardia [Recovered/Resolved]
  - Headache [Unknown]
  - Palpitations [Unknown]
